FAERS Safety Report 16938087 (Version 2)
Quarter: 2019Q4

REPORT INFORMATION
  Report Type: Spontaneous
  Country: RU (occurrence: RU)
  Receive Date: 20191018
  Receipt Date: 20191029
  Transmission Date: 20200122
  Serious: Yes (Other)
  Sender: FDA-Public Use
  Company Number: RU-GILEAD-2019-0433628

PATIENT
  Age: 33 Year
  Sex: Male

DRUGS (1)
  1. VIREAD [Suspect]
     Active Substance: TENOFOVIR DISOPROXIL FUMARATE
     Indication: HEPATITIS B
     Dosage: 300 MG, QD
     Route: 048
     Dates: start: 20170301, end: 20170318

REACTIONS (5)
  - Laryngeal oedema [Recovered/Resolved]
  - Dizziness [Recovered/Resolved]
  - Renal pain [Recovered/Resolved]
  - Headache [Recovered/Resolved]
  - Perihepatic discomfort [Recovered/Resolved]

NARRATIVE: CASE EVENT DATE: 20170318
